FAERS Safety Report 15113731 (Version 1)
Quarter: 2018Q3

REPORT INFORMATION
  Report Type: Spontaneous
  Country: US (occurrence: US)
  Receive Date: 20180706
  Receipt Date: 20180706
  Transmission Date: 20181010
  Serious: No
  Sender: FDA-Public Use
  Company Number: US-PFIZER INC-2018260862

PATIENT
  Age: 19 Year
  Sex: Female

DRUGS (1)
  1. XELJANZ [Suspect]
     Active Substance: TOFACITINIB CITRATE
     Indication: JUVENILE IDIOPATHIC ARTHRITIS
     Dosage: 5 MG, 2X/DAY
     Route: 048

REACTIONS (6)
  - Limb discomfort [Unknown]
  - Pain [Unknown]
  - Peripheral swelling [Unknown]
  - Abdominal pain [Unknown]
  - Joint swelling [Unknown]
  - Product use in unapproved indication [Unknown]
